FAERS Safety Report 17122931 (Version 4)
Quarter: 2019Q4

REPORT INFORMATION
  Report Type: Spontaneous
  Country: US (occurrence: US)
  Receive Date: 20191206
  Receipt Date: 20191213
  Transmission Date: 20200122
  Serious: Yes (Other)
  Sender: FDA-Public Use
  Company Number: US-PFIZER INC-2018225338

PATIENT
  Age: 75 Year
  Sex: Female

DRUGS (1)
  1. IBRANCE [Suspect]
     Active Substance: PALBOCICLIB
     Indication: BREAST CANCER FEMALE
     Dosage: 75 MG, UNK (SUPPOSE TO BE ON 7 DAYS OFF BUT ITS BEEN 3 DAYS BEYOND THAT)

REACTIONS (2)
  - Cerebellar mutism [Unknown]
  - Cerebrovascular accident [Unknown]
